FAERS Safety Report 9799654 (Version 1)
Quarter: 2014Q1

REPORT INFORMATION
  Report Type: Spontaneous
  Country: US (occurrence: None)
  Receive Date: 20140103
  Receipt Date: 20140103
  Transmission Date: 20141002
  Serious: No
  Sender: FDA-Public Use
  Company Number: None

PATIENT
  Age: 71 Year
  Sex: Female

DRUGS (1)
  1. FORTEO 600 MCG/2.4 ML LILLY [Suspect]
     Indication: SENILE OSTEOPOROSIS
     Route: 058
     Dates: start: 20131004, end: 20131124

REACTIONS (3)
  - Vomiting [None]
  - Headache [None]
  - Malaise [None]
